FAERS Safety Report 7223531-8 (Version None)
Quarter: 2011Q1

REPORT INFORMATION
  Report Type: 
  Country: None (occurrence: None)
  Receive Date: 20110112
  Receipt Date: 20100810
  Transmission Date: 20110831
  Serious: No
  Sender: FDA-Public Use
  Company Number: US-ALLERGAN-1010363US

PATIENT
  Age: 74 Year
  Sex: Male

DRUGS (3)
  1. ANTIBIOTIC OINTMENT [Concomitant]
     Indication: BLEPHARITIS
     Dosage: UNK
     Route: 047
  2. ARTIFICIAL TEARS [Concomitant]
     Indication: DRY EYE
     Dosage: 1 GTT, QD
     Route: 047
  3. RESTASIS [Suspect]
     Indication: DRY EYE
     Dosage: 1 GTT, BID
     Route: 047

REACTIONS (1)
  - EYE PAIN [None]
